FAERS Safety Report 8926671 (Version 1)
Quarter: 2012Q4

REPORT INFORMATION
  Report Type: 
  Country: CO (occurrence: CO)
  Receive Date: 20121127
  Receipt Date: 20121127
  Transmission Date: 20130627
  Serious: Yes (Hospitalization, Other)
  Sender: FDA-Public Use
  Company Number: CO-PFIZER INC-2012294902

PATIENT
  Age: 48 Year
  Sex: Female

DRUGS (12)
  1. ASTONIN [Concomitant]
     Dosage: 0.1 mg, UNK
     Dates: start: 201111
  2. ASPIRINE [Concomitant]
     Dosage: 10 mg, UNK
     Dates: start: 201111
  3. ARTRODAR [Concomitant]
     Dosage: 50 mg, UNK
     Dates: start: 201111
  4. CLONAZEPAM [Concomitant]
     Dosage: UNK
     Dates: start: 201111
  5. ALPRAZOLAM [Concomitant]
     Indication: SLEEP DIFFICULT
     Dosage: 0.5 mg, 2x/day
     Dates: start: 2011
  6. QUETIAPINE [Concomitant]
     Indication: SLEEP DIFFICULT
     Dosage: 200 mg, 1x/day
     Dates: start: 201111
  7. MAGNESIUM [Concomitant]
     Dosage: one spoon (UNK)
  8. SALBUTAMOL [Concomitant]
     Indication: BRONCHIAL DISORDER
     Dosage: 2 Puff per day+
  9. DOLEX [Concomitant]
     Indication: PAIN
     Dosage: UNK
  10. EFEXOR [Suspect]
     Dosage: 75 mg, 1x/day
     Route: 048
     Dates: start: 201111
  11. NEXIUM [Concomitant]
     Indication: ESOPHAGEAL DISORDER
     Dosage: 40 mg, 1x/day
     Route: 048
     Dates: start: 2007
  12. HARMETONE [Concomitant]
     Indication: ESOPHAGEAL DISORDER
     Dosage: 10 mg, 2x/day
     Route: 048
     Dates: start: 2007

REACTIONS (7)
  - Porphyria [Recovered/Resolved]
  - Immune system disorder [Recovered/Resolved]
  - Dehydration [Recovered/Resolved]
  - Hypoaesthesia [Recovered/Resolved]
  - Colitis [Unknown]
  - Arthropathy [Unknown]
  - Hypothyroidism [Unknown]
